FAERS Safety Report 24361944 (Version 1)
Quarter: 2024Q3

REPORT INFORMATION
  Report Type: Spontaneous
  Country: ES (occurrence: ES)
  Receive Date: 20240925
  Receipt Date: 20240925
  Transmission Date: 20241017
  Serious: Yes (Hospitalization)
  Sender: RANBAXY
  Company Number: ES-AEMPS-1567031

PATIENT
  Age: 49 Year
  Sex: Female

DRUGS (6)
  1. TILDRAKIZUMAB [Suspect]
     Active Substance: TILDRAKIZUMAB
     Indication: Pustular psoriasis
     Dosage: 200 MILLIGRAM, IN TOTAL
     Route: 058
     Dates: start: 20240220, end: 20240220
  2. TILDRAKIZUMAB [Suspect]
     Active Substance: TILDRAKIZUMAB
     Dosage: 200 MILLIGRAM, IN EVERY12 WEEKS
     Route: 058
     Dates: start: 20240319, end: 20240611
  3. IDACIO [Concomitant]
     Active Substance: ADALIMUMAB-AACF
     Indication: Pustular psoriasis
     Dosage: 40 MILLIGRAM, 1DOSE/2 WEEKS
     Route: 058
     Dates: start: 20220628, end: 20220912
  4. IDACIO [Concomitant]
     Active Substance: ADALIMUMAB-AACF
     Dosage: 40 MILLIGRAM, WEEKLY
     Route: 058
     Dates: start: 20220912, end: 20221104
  5. DEFLAZACORT [Concomitant]
     Active Substance: DEFLAZACORT
     Indication: Pustular psoriasis
     Dosage: 15 MILLIGRAM, DAILY
     Route: 065
  6. TALTZ [Concomitant]
     Active Substance: IXEKIZUMAB
     Indication: Pustular psoriasis
     Dosage: 80 MILLIGRAM, 1DOSE/2 WEEKS
     Route: 065
     Dates: start: 20221220, end: 20240415

REACTIONS (1)
  - Lymphadenopathy [Recovering/Resolving]

NARRATIVE: CASE EVENT DATE: 20240402
